FAERS Safety Report 6161835-0 (Version None)
Quarter: 2009Q2

REPORT INFORMATION
  Report Type: 
  Country: None (occurrence: None)
  Receive Date: 20090417
  Receipt Date: 20090417
  Transmission Date: 20091009
  Serious: Yes (Other)
  Sender: FDA-Public Use
  Company Number: None

PATIENT
  Age: 69 Year
  Sex: Female
  Weight: 76.2043 kg

DRUGS (1)
  1. DORZOLAMIDE HCL AND TIMOLOL MALEATE [Suspect]
     Indication: GLAUCOMA
     Dosage: 1 DROP 2X DAILY EACH EYE
     Dates: start: 20090101, end: 20090122

REACTIONS (3)
  - CEREBROVASCULAR ACCIDENT [None]
  - HYPERTENSION [None]
  - PRODUCT SUBSTITUTION ISSUE [None]
